FAERS Safety Report 16066375 (Version 1)
Quarter: 2019Q1

REPORT INFORMATION
  Report Type: Spontaneous
  Country: DE (occurrence: DE)
  Receive Date: 20190313
  Receipt Date: 20190313
  Transmission Date: 20190418
  Serious: Yes (Disabling)
  Sender: FDA-Public Use
  Company Number: DE-TORRENT-00012311

PATIENT
  Age: 32 Year
  Sex: Male
  Weight: 71 kg

DRUGS (1)
  1. SERTRALIN HEUMANN 50 MG FILMTABLETTEN [Suspect]
     Active Substance: SERTRALINE HYDROCHLORIDE
     Indication: PERSISTENT DEPRESSIVE DISORDER
     Dosage: 25MG
     Route: 048
     Dates: start: 201804, end: 201806

REACTIONS (10)
  - Dyspepsia [Not Recovered/Not Resolved]
  - Retching [Not Recovered/Not Resolved]
  - Eructation [Not Recovered/Not Resolved]
  - Regurgitation [Not Recovered/Not Resolved]
  - Gastric dilatation [Not Recovered/Not Resolved]
  - Impaired gastric emptying [Not Recovered/Not Resolved]
  - Abdominal distension [Not Recovered/Not Resolved]
  - Abdominal pain upper [Not Recovered/Not Resolved]
  - Eructation [Not Recovered/Not Resolved]
  - Abdominal pain upper [Not Recovered/Not Resolved]

NARRATIVE: CASE EVENT DATE: 20180614
